FAERS Safety Report 8015853-8 (Version None)
Quarter: 2011Q4

REPORT INFORMATION
  Report Type: 
  Country: None (occurrence: None)
  Receive Date: 20111230
  Receipt Date: 20110413
  Transmission Date: 20120403
  Serious: Yes (Other)
  Sender: FDA-Public Use
  Company Number: PHHY2011DE73271

PATIENT
  Sex: Female
  Weight: 50 kg

DRUGS (1)
  1. SANDOSTATIN LAR [Suspect]
     Indication: PANCREATIC NEUROENDOCRINE TUMOUR
     Dosage: 30 MG PER 28 DAYS
     Route: 030
     Dates: start: 20051003

REACTIONS (4)
  - DIARRHOEA [None]
  - FLUSHING [None]
  - ASTHMA [None]
  - COUGH [None]
